FAERS Safety Report 4601639-0 (Version None)
Quarter: 2005Q1

REPORT INFORMATION
  Report Type: 
  Country: None (occurrence: None)
  Receive Date: 20050308
  Receipt Date: 20050304
  Transmission Date: 20050727
  Serious: Yes (Life-Threatening, Hospitalization)
  Sender: FDA-Public Use
  Company Number: ZW-GLAXOSMITHKLINE-B0373687A

PATIENT
  Age: 45 Year
  Sex: Female

DRUGS (6)
  1. LAMIVUDINE [Suspect]
     Indication: HIV INFECTION
  2. STAVUDINE [Suspect]
     Indication: HIV INFECTION
  3. TENOFOVIR [Suspect]
     Indication: HIV INFECTION
  4. RIFA [Suspect]
  5. PYRAZINAMIDE [Suspect]
  6. INH [Suspect]

REACTIONS (3)
  - CONFUSIONAL STATE [None]
  - JAUNDICE [None]
  - OEDEMA [None]
